FAERS Safety Report 19484870 (Version 12)
Quarter: 2023Q4

REPORT INFORMATION
  Report Type: Report from Study
  Country: US (occurrence: US)
  Receive Date: 20210702
  Receipt Date: 20231006
  Transmission Date: 20240110
  Serious: Yes (Death, Other)
  Sender: FDA-Public Use
  Company Number: US-ACADIA PHARMACEUTICALS INC.-ACA-2021-PIM-002145

PATIENT
  Sex: Male
  Weight: 102 kg

DRUGS (36)
  1. NUPLAZID [Suspect]
     Active Substance: PIMAVANSERIN TARTRATE
     Indication: Parkinson^s disease psychosis
     Dosage: 34 MILLIGRAM, QD, BETWEEN 5 AND 6
     Route: 048
     Dates: start: 20210525
  2. NUPLAZID [Suspect]
     Active Substance: PIMAVANSERIN TARTRATE
     Indication: Hallucination
     Dosage: 34 MILLIGRAM, QD, BETWEEN 5 AND 6
     Route: 048
  3. NUPLAZID [Suspect]
     Active Substance: PIMAVANSERIN TARTRATE
     Indication: Delusion
     Dosage: 34 MILLIGRAM, QD
     Route: 048
  4. NUPLAZID [Suspect]
     Active Substance: PIMAVANSERIN TARTRATE
     Indication: Psychotic disorder
     Dosage: 44 MILLIGRAM (34MG CAPSULE+10MG TABLET), QD
     Route: 048
     Dates: end: 20230804
  5. NUPLAZID [Suspect]
     Active Substance: PIMAVANSERIN TARTRATE
     Indication: Parkinson^s disease
  6. NUPLAZID [Suspect]
     Active Substance: PIMAVANSERIN TARTRATE
     Indication: Parkinson^s disease
     Dosage: 10 MILLIGRAM, QD
     Route: 048
     Dates: start: 20230224
  7. NUPLAZID [Suspect]
     Active Substance: PIMAVANSERIN TARTRATE
     Indication: Hallucination
     Dosage: 10 MILLIGRAM, QD
     Route: 048
     Dates: start: 20230308
  8. NUPLAZID [Suspect]
     Active Substance: PIMAVANSERIN TARTRATE
     Dosage: 44 MILLIGRAM ((34MG CAPSULE+10MG TABLET), QD
     Route: 048
     Dates: end: 20230804
  9. PRAMIPEXOLE DIHYDROCHLORIDE [Concomitant]
     Active Substance: PRAMIPEXOLE DIHYDROCHLORIDE
  10. CARBIDOPA\ENTACAPONE\LEVODOPA [Concomitant]
     Active Substance: CARBIDOPA\ENTACAPONE\LEVODOPA
  11. ASPIRIN [Concomitant]
     Active Substance: ASPIRIN
     Dosage: 325 MILLIGRAM
  12. ASPIRIN [Concomitant]
     Active Substance: ASPIRIN
     Dosage: 81 MILLIGRAM
  13. AMANTADINE [Concomitant]
     Active Substance: AMANTADINE
     Dosage: 100 MILLIGRAM
     Route: 048
  14. SIMVASTATIN [Concomitant]
     Active Substance: SIMVASTATIN
     Dosage: 10 MILLIGRAM
  15. METOPROLOL SUCCINATE [Concomitant]
     Active Substance: METOPROLOL SUCCINATE
  16. RASAGILINE MESYLATE [Concomitant]
     Active Substance: RASAGILINE MESYLATE
     Dosage: 1 MILLIGRAM
  17. METFORMIN HYDROCHLORIDE [Concomitant]
     Active Substance: METFORMIN HYDROCHLORIDE
     Dosage: 500 MILLIGRAM
  18. CARBIDOPA\LEVODOPA [Concomitant]
     Active Substance: CARBIDOPA\LEVODOPA
  19. TYLENOL [Concomitant]
     Active Substance: ACETAMINOPHEN
     Indication: Pain
     Dosage: 1000 MG EVERY 6 HOURS AS NEEDED
     Route: 048
  20. VENTOLIN HFA [Concomitant]
     Active Substance: ALBUTEROL SULFATE
     Indication: Wheezing
     Dosage: INHALE 2 PUFFS EVERY 6 HOURS AS NEEDED
  21. SINEMET CR [Concomitant]
     Active Substance: CARBIDOPA\LEVODOPA
     Dosage: 25-100 MG, TAKE 1 TABLET BY MOUTH IN THE MORNING AND 1 TABLET AT NOON AND 1 TABLET BEFORE AT BEDTIME
     Dates: start: 20220706
  22. SINEMET [Concomitant]
     Active Substance: CARBIDOPA\LEVODOPA
     Dosage: 25-100 MG, 2 TABLETS (THREE) TIMES A DAY
     Route: 048
     Dates: start: 20210206
  23. GLUCOPHAGE [Concomitant]
     Active Substance: METFORMIN HYDROCHLORIDE
     Dosage: 250 MILLIGRAM, QD
     Route: 048
     Dates: start: 20200529
  24. TOPROL XL [Concomitant]
     Active Substance: METOPROLOL SUCCINATE
     Dosage: 25 MILLIGRAM, QD
     Route: 048
     Dates: start: 20200219
  25. NITROSTAT [Concomitant]
     Active Substance: NITROGLYCERIN
     Dosage: 0.4 MG, UNDER TONGUE EVERY 5 MINUTES AS NEEDED
     Route: 060
  26. AZILECT [Concomitant]
     Active Substance: RASAGILINE MESYLATE
     Dosage: 1 MILLIGRAM, QD
     Route: 048
     Dates: start: 20210831, end: 20211118
  27. EXELON [Concomitant]
     Active Substance: RIVASTIGMINE TARTRATE
     Dosage: 3 MILLIGRAM, TAKE 3 MG WITH BREAKFAST, 3 MG WITH LUNCH, AND 6 MG WITH DINNER
     Dates: start: 20210831
  28. ZOCOR [Concomitant]
     Active Substance: SIMVASTATIN
     Dosage: 20 MILLIGRAM, NIGHTLY
     Route: 048
  29. NIZORAL [Concomitant]
     Active Substance: KETOCONAZOLE
     Indication: Pruritus
     Dosage: 1 APPLICATION 2 TIMES A DAY AS NEEDED
     Route: 061
  30. SYMMETREL [Concomitant]
     Active Substance: AMANTADINE HYDROCHLORIDE
     Dosage: 100 MILLIGRAM, TWO TIMES A DAY, TAKES AT 6 AM 11 AM
     Route: 048
  31. MIRAPEX [Concomitant]
     Active Substance: PRAMIPEXOLE DIHYDROCHLORIDE
     Dosage: 0.125 MG
     Route: 048
     Dates: end: 20211118
  32. DETROL LA [Concomitant]
     Active Substance: TOLTERODINE TARTRATE
     Indication: Autonomic nervous system imbalance
     Dosage: 4 MILLIGRAM, TAKE 2 CAPSULES (TOTAL SMG) DAILY
     Dates: start: 20210106, end: 20210831
  33. DETROL LA [Concomitant]
     Active Substance: TOLTERODINE TARTRATE
     Indication: Bladder dysfunction
  34. DESYREL [Concomitant]
     Active Substance: TRAZODONE HYDROCHLORIDE
     Indication: Sleep disorder
     Dosage: 50 MILLIGRAM, TAKE AT 6:00 P.M. EVERY NIGHT AS NEEDED
     Dates: start: 20210203, end: 20210831
  35. BACTRIM [Concomitant]
     Active Substance: SULFAMETHOXAZOLE\TRIMETHOPRIM
     Dosage: 400-80 MG, TAKE 1 TABLET 2 TIMES A DAY
     Route: 048
     Dates: end: 20200811
  36. PROVENTIL HFA [Concomitant]
     Active Substance: ALBUTEROL SULFATE
     Indication: Wheezing
     Dosage: INHALE 2 PUFFS EVERY 6 HOURS AS NEEDED

REACTIONS (16)
  - Death [Recovered/Resolved]
  - Abnormal behaviour [Unknown]
  - Product dose omission issue [Unknown]
  - Product dose omission issue [Unknown]
  - Tendon rupture [Not Recovered/Not Resolved]
  - Herpes zoster [Recovered/Resolved]
  - Staphylococcal infection [Unknown]
  - Contusion [Not Recovered/Not Resolved]
  - Aggression [Unknown]
  - Peripheral swelling [Not Recovered/Not Resolved]
  - Hallucinations, mixed [Unknown]
  - Hallucination [Unknown]
  - Hallucination [Unknown]
  - Aggression [Unknown]
  - Aggression [Unknown]
  - Overdose [Unknown]

NARRATIVE: CASE EVENT DATE: 20210101
